FAERS Safety Report 6190666-0 (Version None)
Quarter: 2009Q2

REPORT INFORMATION
  Report Type: 
  Country: None (occurrence: None)
  Receive Date: 20090514
  Receipt Date: 20090502
  Transmission Date: 20091009
  Serious: Yes (Other)
  Sender: FDA-Public Use
  Company Number: JP-PFIZER INC-2009207486

PATIENT
  Age: 9 Year

DRUGS (2)
  1. PHENYTOIN AND PHENYTOIN SODIUM [Suspect]
     Dosage: 150 MG, UNK
  2. CLOBAZAM [Suspect]
     Dosage: 9 MG, UNK

REACTIONS (3)
  - CEREBELLAR SYNDROME [None]
  - CONVULSION [None]
  - THERAPEUTIC AGENT TOXICITY [None]
